FAERS Safety Report 8386417-1 (Version None)
Quarter: 2012Q2

REPORT INFORMATION
  Report Type: 
  Country: None (occurrence: None)
  Receive Date: 20120525
  Receipt Date: 20120516
  Transmission Date: 20120825
  Serious: Yes (Life-Threatening, Hospitalization)
  Sender: FDA-Public Use
  Company Number: DE-PFIZER INC-DE-WYE-G05470410

PATIENT
  Age: 70 Year
  Sex: Female
  Weight: 70 kg

DRUGS (14)
  1. VENLAFAXINE HCL [Suspect]
     Dosage: 37.5 MG, 2X/DAY
     Route: 048
     Dates: end: 20090803
  2. DOXAZOSIN MESILATE [Interacting]
     Indication: HYPERTENSION
     Dosage: 4 MG, 1X/DAY
     Route: 048
  3. SPIRONOLACTONE [Interacting]
     Indication: HYPERTENSION
     Dosage: 25 MG, 1X/DAY
     Route: 048
     Dates: end: 20090803
  4. METFORMIN [Concomitant]
     Indication: TYPE 2 DIABETES MELLITUS
     Dosage: 1000 MG, 2X/DAY
     Route: 048
     Dates: end: 20090802
  5. ENEAS [Interacting]
     Indication: HYPERTENSION
     Dosage: 10 MG/ 20 MG DAILY
     Route: 048
     Dates: end: 20090803
  6. ACETYLSALICYLIC ACID [Concomitant]
     Indication: ISCHAEMIC HEART DISEASE PROPHYLAXIS
     Dosage: 100 MG, 1X/DAY
     Route: 048
  7. BISOPROLOL FUMARATE AND HYDROCHLOROTHIAZIDE [Interacting]
     Indication: HYPERTENSION
     Dosage: 5 MG/12.5 MG MG PER DAY
     Route: 048
     Dates: end: 20090803
  8. DIGITOXIN [Suspect]
     Dosage: 70 UG, 1X/DAY
     Route: 048
  9. DEMADEX [Interacting]
     Indication: HYPERTENSION
     Dosage: 10 MG, 1X/DAY
     Route: 048
     Dates: end: 20090804
  10. ACTRAPID INSULIN NOVO [Concomitant]
     Indication: TYPE 2 DIABETES MELLITUS
     Dosage: 20 IU, 3X/DAY
     Route: 058
  11. XALATAN [Concomitant]
     Indication: GLAUCOMA
     Dosage: 1.5 UG, 1X/DAY
     Route: 057
  12. LANTUS [Concomitant]
     Indication: TYPE 2 DIABETES MELLITUS
     Dosage: 64 IU, 1X/DAY
     Route: 058
  13. DICLOFENAC [Suspect]
     Indication: PAIN
     Dosage: 50 MG, 1X/DAY
     Route: 048
     Dates: end: 20090803
  14. NIASPAN [Concomitant]
     Dosage: 1500 MG, 1X/DAY
     Route: 048

REACTIONS (3)
  - BICYTOPENIA [None]
  - DRUG INTERACTION [None]
  - RENAL FAILURE ACUTE [None]
